FAERS Safety Report 7653548-0 (Version None)
Quarter: 2011Q3

REPORT INFORMATION
  Report Type: 
  Country: None (occurrence: None)
  Receive Date: 20110803
  Receipt Date: 20110802
  Transmission Date: 20111222
  Serious: Yes (Other)
  Sender: FDA-Public Use
  Company Number: DE-PFIZER INC-2011163081

PATIENT
  Age: 56 Year
  Sex: Female
  Weight: 72 kg

DRUGS (4)
  1. OXYCODONE HCL [Suspect]
     Dosage: 40 MG, 2X/DAY
     Route: 048
  2. TAPENTADOL [Concomitant]
     Dosage: 100 MG, 2X/DAY
     Route: 048
     Dates: start: 20110108, end: 20110109
  3. LYRICA [Suspect]
     Dosage: 75 MG, 2X/DAY
     Route: 048
  4. LYRICA [Suspect]
     Dosage: 150 MG, 1X/DAY
     Route: 048

REACTIONS (6)
  - PARAESTHESIA [None]
  - CLUMSINESS [None]
  - WITHDRAWAL SYNDROME [None]
  - MALAISE [None]
  - FEELING COLD [None]
  - FATIGUE [None]
